FAERS Safety Report 15425057 (Version 1)
Quarter: 2018Q3

REPORT INFORMATION
  Report Type: Spontaneous
  Country: US (occurrence: US)
  Receive Date: 20180917
  Receipt Date: 20180917
  Transmission Date: 20181010
  Serious: No
  Sender: FDA-Public Use
  Company Number: None

PATIENT
  Age: 56 Year
  Sex: Male

DRUGS (1)
  1. ATAZANAVIR SULF CAP 300MG [Suspect]
     Active Substance: ATAZANAVIR SULFATE
     Dates: start: 201109, end: 201809

REACTIONS (3)
  - CD4 lymphocytes abnormal [None]
  - Bone density abnormal [None]
  - Viral load undetectable [None]

NARRATIVE: CASE EVENT DATE: 20180917
